FAERS Safety Report 7270114-X (Version None)
Quarter: 2011Q1

REPORT INFORMATION
  Report Type: 
  Country: None (occurrence: None)
  Receive Date: 20110202
  Receipt Date: 20110202
  Transmission Date: 20110831
  Serious: Yes (Hospitalization, Other)
  Sender: FDA-Public Use
  Company Number: DE-ABBOTT-10P-062-0690427-00

PATIENT
  Sex: Male
  Weight: 75 kg

DRUGS (1)
  1. HUMIRA [Suspect]
     Indication: RHEUMATOID ARTHRITIS
     Route: 058
     Dates: start: 20100823, end: 20101201

REACTIONS (6)
  - PNEUMOPERITONEUM [None]
  - DYSPNOEA [None]
  - HIATUS HERNIA [None]
  - ILL-DEFINED DISORDER [None]
  - INGUINAL HERNIA [None]
  - BODY TEMPERATURE INCREASED [None]
